FAERS Safety Report 8836918 (Version 1)
Quarter: 2012Q4

REPORT INFORMATION
  Report Type: Spontaneous
  Country: GB (occurrence: None)
  Receive Date: 20121010
  Receipt Date: 20121010
  Transmission Date: 20130627
  Serious: Yes (Disabling)
  Sender: FDA-Public Use
  Company Number: 1433440

PATIENT
  Age: 39 Year
  Sex: Female

DRUGS (3)
  1. VINCRISTINE SULFATE [Suspect]
     Indication: CHEMOTHERAPY
     Dates: end: 20120606
  2. DIFLUCAN [Suspect]
     Indication: DRUG USE FOR UNKNOWN INDICATION
     Route: 048
     Dates: start: 20120618, end: 20120620
  3. CHEMOTHERAPEUTICS [Concomitant]

REACTIONS (2)
  - Neuropathy peripheral [None]
  - Drug interaction [None]
